FAERS Safety Report 7796700-6 (Version None)
Quarter: 2011Q4

REPORT INFORMATION
  Report Type: 
  Country: None (occurrence: None)
  Receive Date: 20111005
  Receipt Date: 20110923
  Transmission Date: 20120403
  Serious: Yes (Hospitalization)
  Sender: FDA-Public Use
  Company Number: US-JNJFOC-20110910378

PATIENT
  Sex: Male
  Weight: 68.04 kg

DRUGS (2)
  1. REMICADE [Suspect]
     Route: 042
  2. REMICADE [Suspect]
     Indication: COLITIS ULCERATIVE
     Route: 042
     Dates: start: 20110701

REACTIONS (8)
  - THERAPEUTIC RESPONSE DECREASED [None]
  - SWELLING FACE [None]
  - LOSS OF CONSCIOUSNESS [None]
  - FALL [None]
  - HYPOAESTHESIA [None]
  - INCORRECT DOSE ADMINISTERED [None]
  - BLOOD PRESSURE DECREASED [None]
  - CROHN'S DISEASE [None]
